FAERS Safety Report 12930007 (Version 2)
Quarter: 2016Q4

REPORT INFORMATION
  Report Type: Report from Study
  Country: JP (occurrence: JP)
  Receive Date: 20161110
  Receipt Date: 20161212
  Transmission Date: 20170207
  Serious: Yes (Death, Other)
  Sender: FDA-Public Use
  Company Number: JP-SA-2016SA203615

PATIENT

DRUGS (2)
  1. CISPLATIN. [Suspect]
     Active Substance: CISPLATIN
     Indication: ENDOMETRIAL ADENOCARCINOMA
     Dosage: EVERY 28 DAYS
     Route: 065
  2. DOCETAXEL. [Suspect]
     Active Substance: DOCETAXEL
     Indication: ENDOMETRIAL ADENOCARCINOMA
     Dosage: EVERY 28 DAYS
     Route: 065

REACTIONS (5)
  - Endometrial adenocarcinoma [Unknown]
  - Disease recurrence [Unknown]
  - Metastases to peritoneum [Unknown]
  - Intestinal obstruction [Fatal]
  - Drug ineffective [Unknown]
